FAERS Safety Report 11941773 (Version 4)
Quarter: 2016Q2

REPORT INFORMATION
  Report Type: Report from Study
  Country: DE (occurrence: DE)
  Receive Date: 20160123
  Receipt Date: 20160422
  Transmission Date: 20160815
  Serious: Yes (Life-Threatening, Hospitalization, Disabling, Other)
  Sender: FDA-Public Use
  Company Number: DE-BRISTOL-MYERS SQUIBB COMPANY-BMS-2016-002768

PATIENT
  Age: 77 Year
  Sex: Female
  Weight: 57.7 kg

DRUGS (5)
  1. APIXABAN [Suspect]
     Active Substance: APIXABAN
     Indication: CEREBROVASCULAR ACCIDENT PROPHYLAXIS
     Dosage: 5 MG, BID
     Route: 048
     Dates: start: 201506
  2. SIMVASTATIN. [Concomitant]
     Active Substance: SIMVASTATIN
     Indication: BLOOD CHOLESTEROL INCREASED
     Dosage: 40 MG, UNK
     Route: 048
  3. METOPROLOL                         /00376902/ [Concomitant]
     Active Substance: METOPROLOL
     Indication: HYPERTENSION
     Route: 048
  4. TRIAMCINOLONE [Concomitant]
     Active Substance: TRIAMCINOLONE
     Indication: ADRENOCORTICAL STEROID THERAPY
     Route: 048
  5. BERLINSULIN H [Concomitant]
     Indication: DIABETES MELLITUS
     Route: 030

REACTIONS (9)
  - Osteoporosis [Unknown]
  - Cerebral infarction [Not Recovered/Not Resolved]
  - Cerebellar infarction [Not Recovered/Not Resolved]
  - Cardiac failure [Unknown]
  - Hyperparathyroidism [Unknown]
  - Asthma [Unknown]
  - Neurodermatitis [Unknown]
  - Diverticulum intestinal [Unknown]
  - Brain stem infarction [Not Recovered/Not Resolved]

NARRATIVE: CASE EVENT DATE: 20160101
